FAERS Safety Report 5669744-8 (Version None)
Quarter: 2008Q1

REPORT INFORMATION
  Report Type: 
  Country: None (occurrence: None)
  Receive Date: 20080317
  Receipt Date: 20080311
  Transmission Date: 20080703
  Serious: Yes (Other)
  Sender: FDA-Public Use
  Company Number: BR-ASTRAZENECA-2008UW05129

PATIENT
  Age: 49 Year
  Sex: Female
  Weight: 53 kg

DRUGS (2)
  1. ARIMIDEX [Suspect]
     Indication: BREAST CANCER
     Route: 048
     Dates: start: 20050701
  2. TAMOXIFEN [Concomitant]
     Indication: BREAST CANCER
     Route: 048
     Dates: start: 20030101, end: 20050101

REACTIONS (12)
  - ALOPECIA [None]
  - ATROPHY [None]
  - ENDOMETRIAL DISORDER [None]
  - HAIR TEXTURE ABNORMAL [None]
  - IMPAIRED HEALING [None]
  - LIBIDO DECREASED [None]
  - NAIL DISORDER [None]
  - OSTEOPENIA [None]
  - OVARIAN ATROPHY [None]
  - UTERINE DISORDER [None]
  - VAGINAL PAIN [None]
  - VULVOVAGINAL DRYNESS [None]
